FAERS Safety Report 7966606-8 (Version None)
Quarter: 2011Q4

REPORT INFORMATION
  Report Type: 
  Country: None (occurrence: None)
  Receive Date: 20111209
  Receipt Date: 20111130
  Transmission Date: 20120403
  Serious: Yes (Hospitalization, Other)
  Sender: FDA-Public Use
  Company Number: FR-BIOGENIDEC-2011BI045840

PATIENT
  Age: 40 Year
  Sex: Female
  Weight: 56 kg

DRUGS (5)
  1. TYSABRI [Suspect]
     Indication: MULTIPLE SCLEROSIS
     Route: 042
     Dates: start: 20070620, end: 20110209
  2. DITROPAN [Concomitant]
     Indication: URINARY TRACT DISORDER
     Dates: start: 20090101
  3. MYOLASTAN [Concomitant]
     Indication: PAIN
     Dates: start: 20090101
  4. ESCITALOPRAM OXALATE [Concomitant]
     Indication: SEDATIVE THERAPY
     Dates: start: 20100901
  5. CRESTOR [Concomitant]
     Indication: HYPERCHOLESTEROLAEMIA
     Dates: start: 20110101

REACTIONS (1)
  - METASTATIC BRONCHIAL CARCINOMA [None]
